FAERS Safety Report 11702043 (Version 2)
Quarter: 2015Q4

REPORT INFORMATION
  Report Type: Spontaneous
  Country: US (occurrence: US)
  Receive Date: 20151105
  Receipt Date: 20151116
  Transmission Date: 20160304
  Serious: Yes (Other)
  Sender: FDA-Public Use
  Company Number: US-TEVA-606613USA

PATIENT
  Age: 43 Year
  Sex: Male
  Weight: 148.91 kg

DRUGS (3)
  1. PROVIGIL [Suspect]
     Active Substance: MODAFINIL
     Indication: SOMNOLENCE
     Route: 065
     Dates: start: 20151102
  2. PROVIGIL [Suspect]
     Active Substance: MODAFINIL
     Indication: FATIGUE
  3. PROVIGIL [Suspect]
     Active Substance: MODAFINIL
     Indication: SLEEP APNOEA SYNDROME

REACTIONS (6)
  - Altered state of consciousness [Not Recovered/Not Resolved]
  - Depressed level of consciousness [Not Recovered/Not Resolved]
  - Somnolence [Not Recovered/Not Resolved]
  - Hypersomnia [Not Recovered/Not Resolved]
  - Expired product administered [Unknown]
  - Drug ineffective [Unknown]

NARRATIVE: CASE EVENT DATE: 20151102
